FAERS Safety Report 12660995 (Version 4)
Quarter: 2017Q1

REPORT INFORMATION
  Report Type: Spontaneous
  Country: US (occurrence: US)
  Receive Date: 20160817
  Receipt Date: 20170216
  Transmission Date: 20170428
  Serious: No
  Sender: FDA-Public Use
  Company Number: US-RELYPSA-RLY2016001422

PATIENT
  Age: 57 Year
  Sex: Female

DRUGS (13)
  1. AMLODIPINE BESYLATE. [Concomitant]
     Active Substance: AMLODIPINE BESYLATE
  2. PANTOPRAZOLE SODIUM. [Concomitant]
     Active Substance: PANTOPRAZOLE SODIUM
  3. MONTELUKAST SODIUM. [Concomitant]
     Active Substance: MONTELUKAST SODIUM
  4. CALCITRIOL. [Concomitant]
     Active Substance: CALCITRIOL
  5. DRISDOL [Concomitant]
     Active Substance: ERGOCALCIFEROL
  6. CRESTOR [Concomitant]
     Active Substance: ROSUVASTATIN CALCIUM
  7. KAYEXALATE [Concomitant]
     Active Substance: SODIUM POLYSTYRENE SULFONATE
  8. VELTASSA [Suspect]
     Active Substance: PATIROMER
     Indication: HYPERKALAEMIA
     Dosage: 8.4 G, QD
     Route: 048
     Dates: start: 20160629
  9. IRBESARTAN. [Concomitant]
     Active Substance: IRBESARTAN
  10. ONDANSETRON HCL [Concomitant]
     Active Substance: ONDANSETRON HYDROCHLORIDE
  11. ZAFIRLUKAST. [Concomitant]
     Active Substance: ZAFIRLUKAST
  12. PROCRIT [Concomitant]
     Active Substance: ERYTHROPOIETIN
  13. LORATADINE. [Concomitant]
     Active Substance: LORATADINE

REACTIONS (3)
  - Malaise [Unknown]
  - Headache [Unknown]
  - Rash [Not Recovered/Not Resolved]

NARRATIVE: CASE EVENT DATE: 201609
